FAERS Safety Report 8533479-4 (Version None)
Quarter: 2012Q3

REPORT INFORMATION
  Report Type: 
  Country: None (occurrence: None)
  Receive Date: 20120724
  Receipt Date: 20120719
  Transmission Date: 20120928
  Serious: Yes (Other)
  Sender: FDA-Public Use
  Company Number: US-BAYER-2012-073501

PATIENT
  Sex: Female

DRUGS (1)
  1. MIRENA [Suspect]
     Indication: CONTRACEPTION
     Dosage: UNK
     Dates: start: 20110801, end: 20120101

REACTIONS (4)
  - GENITAL HAEMORRHAGE [None]
  - ABDOMINAL PAIN [None]
  - DEVICE DISLOCATION [None]
  - DEPRESSION [None]
